FAERS Safety Report 7333375-4 (Version None)
Quarter: 2011Q1

REPORT INFORMATION
  Report Type: 
  Country: None (occurrence: None)
  Receive Date: 20110304
  Receipt Date: 20110201
  Transmission Date: 20110831
  Serious: No
  Sender: FDA-Public Use
  Company Number: US-PFIZER INC-2011024177

PATIENT

DRUGS (1)
  1. NITROSTAT [Suspect]
     Dosage: 0.4 MG, UNK

REACTIONS (1)
  - DRUG INEFFECTIVE [None]
